FAERS Safety Report 11030905 (Version 1)
Quarter: 2015Q2

REPORT INFORMATION
  Report Type: Spontaneous
  Country: FR (occurrence: FR)
  Receive Date: 20150415
  Receipt Date: 20150415
  Transmission Date: 20150821
  Serious: Yes (Death, Hospitalization)
  Sender: FDA-Public Use
  Company Number: FR-SA-2015SA045659

PATIENT
  Age: 77 Year
  Sex: Male

DRUGS (11)
  1. GEMCITABINE [Suspect]
     Active Substance: GEMCITABINE\GEMCITABINE HYDROCHLORIDE
     Indication: HEPATIC CANCER
     Route: 042
     Dates: start: 20150106, end: 20150106
  2. GEMCITABINE [Suspect]
     Active Substance: GEMCITABINE\GEMCITABINE HYDROCHLORIDE
     Indication: HEPATIC CANCER
     Route: 042
     Dates: start: 20141212, end: 20141212
  3. OXALIPLATIN. [Suspect]
     Active Substance: OXALIPLATIN
     Indication: HEPATIC CANCER
     Route: 042
     Dates: start: 20141212, end: 20150203
  4. TRUVADA [Concomitant]
     Active Substance: EMTRICITABINE\TENOFOVIR DISOPROXIL FUMARATE
     Dosage: STRENGTH:  200 MG/245 MG
     Route: 048
     Dates: start: 2006, end: 20150303
  5. ATENOLOL. [Concomitant]
     Active Substance: ATENOLOL
     Route: 048
     Dates: start: 201407, end: 20150303
  6. EUPANTOL [Suspect]
     Active Substance: PANTOPRAZOLE SODIUM
     Dosage: TWICE
     Route: 048
     Dates: start: 20150215, end: 20150303
  7. CERTICAN [Concomitant]
     Active Substance: EVEROLIMUS
     Route: 048
     Dates: start: 2006, end: 20150219
  8. WELLVONE [Concomitant]
     Active Substance: ATOVAQUONE
     Dosage: DOSE: 750MG/5ML
     Route: 048
     Dates: start: 20141212, end: 20150303
  9. TRIATEC [Suspect]
     Active Substance: RAMIPRIL
     Route: 048
     Dates: start: 201407, end: 20150220
  10. GEMCITABINE [Suspect]
     Active Substance: GEMCITABINE\GEMCITABINE HYDROCHLORIDE
     Indication: HEPATIC CANCER
     Route: 042
     Dates: start: 20150203, end: 20150203
  11. GEMCITABINE [Suspect]
     Active Substance: GEMCITABINE\GEMCITABINE HYDROCHLORIDE
     Indication: HEPATIC CANCER
     Route: 042
     Dates: start: 20150120, end: 20150120

REACTIONS (2)
  - Acute kidney injury [Not Recovered/Not Resolved]
  - Hypokalaemia [Fatal]

NARRATIVE: CASE EVENT DATE: 20150220
